FAERS Safety Report 4497903-9 (Version None)
Quarter: 2004Q4

REPORT INFORMATION
  Report Type: 
  Country: None (occurrence: None)
  Receive Date: 20041104
  Receipt Date: 20041025
  Transmission Date: 20050328
  Serious: Yes (Other)
  Sender: FDA-Public Use
  Company Number: 2004240931AR

PATIENT
  Age: 49 Year
  Sex: Male
  Weight: 95 kg

DRUGS (4)
  1. ALDACTONE [Suspect]
     Indication: HYPERTENSION
     Dosage: 100 MG, DAILY, ORAL
     Route: 048
     Dates: start: 20031001
  2. TELMISARTAN(TELMISARTAN) [Concomitant]
  3. ALPRAZOLAM [Concomitant]
  4. ANTIHYPERTENSIVES [Concomitant]

REACTIONS (11)
  - ARRHYTHMIA [None]
  - BREAST PAIN [None]
  - BREAST SWELLING [None]
  - CONFUSIONAL STATE [None]
  - DIARRHOEA [None]
  - DIZZINESS [None]
  - HYPOTENSION [None]
  - LETHARGY [None]
  - MOVEMENT DISORDER [None]
  - SOMNOLENCE [None]
  - SYNCOPE [None]
